FAERS Safety Report 4407235-2 (Version None)
Quarter: 2004Q3

REPORT INFORMATION
  Report Type: 
  Country: None (occurrence: None)
  Receive Date: 20040722
  Receipt Date: 20040722
  Transmission Date: 20050211
  Serious: Yes (Death)
  Sender: FDA-Public Use
  Company Number: None

PATIENT
  Age: 92 Year
  Sex: Female
  Weight: 37 kg

DRUGS (4)
  1. MEPERIDINE 300 MG/30 ML ABBOTT [Suspect]
     Indication: PAIN
     Dosage: 30 MG PER HOUR INTRAVENOUS
     Route: 042
     Dates: start: 20040124, end: 20040126
  2. FUROSEMIDE [Concomitant]
  3. DIGOXIN [Concomitant]
  4. HEPARIN [Concomitant]

REACTIONS (2)
  - AGITATION [None]
  - MUSCLE TWITCHING [None]
